FAERS Safety Report 12376544 (Version 1)
Quarter: 2016Q2

REPORT INFORMATION
  Report Type: Spontaneous
  Country: US (occurrence: US)
  Receive Date: 20160517
  Receipt Date: 20160517
  Transmission Date: 20160815
  Serious: No
  Sender: FDA-Public Use
  Company Number: US-RELYPSA-RLY2016000144

PATIENT

DRUGS (16)
  1. VELTASSA [Suspect]
     Active Substance: PATIROMER
     Indication: HYPERKALAEMIA
     Dosage: 8.4 G, QD
     Route: 048
     Dates: start: 20160217
  2. VITAMIN D                          /00107901/ [Concomitant]
     Active Substance: ERGOCALCIFEROL
  3. TRAVATAN Z [Concomitant]
     Active Substance: TRAVOPROST
  4. CALCITRIOL. [Concomitant]
     Active Substance: CALCITRIOL
  5. LANTUS (SOLOSTAR) [Concomitant]
  6. PANTOPRAZOLE SODIUM. [Concomitant]
     Active Substance: PANTOPRAZOLE SODIUM
  7. WELCHOL [Concomitant]
     Active Substance: COLESEVELAM HYDROCHLORIDE
  8. ASPIRIN 81 [Concomitant]
     Active Substance: ASPIRIN
  9. NOVOLOG [Concomitant]
     Active Substance: INSULIN ASPART
  10. MAGNESIUM OXIDE. [Concomitant]
     Active Substance: MAGNESIUM OXIDE
  11. FERROUS SULFATE. [Concomitant]
     Active Substance: FERROUS SULFATE
  12. COREG [Concomitant]
     Active Substance: CARVEDILOL
  13. TYLENOL EXTRA STRENGTH [Concomitant]
     Active Substance: ACETAMINOPHEN
  14. RENA-VITE [Concomitant]
     Active Substance: ASCORBIC ACID\BIOTIN\CALCIUM PANTOTHENATE\CYANOCOBALAMIN\FOLIC ACID\NIACINAMIDE\PYRIDOXINE HYDROCHLORIDE\RIBOFLAVIN\THIAMINE MONONITRATE
  15. GLIPIZIDE. [Concomitant]
     Active Substance: GLIPIZIDE
  16. FUROSEMIDE. [Concomitant]
     Active Substance: FUROSEMIDE

REACTIONS (2)
  - Microalbuminuria [Unknown]
  - Urine abnormality [Unknown]
